FAERS Safety Report 16712874 (Version 2)
Quarter: 2019Q3

REPORT INFORMATION
  Report Type: Spontaneous
  Country: GB (occurrence: GB)
  Receive Date: 20190817
  Receipt Date: 20190826
  Transmission Date: 20191004
  Serious: Yes (Hospitalization)
  Sender: FDA-Public Use
  Company Number: GB-AUROBINDO-AUR-APL-2019-053785

PATIENT

DRUGS (2)
  1. LANTUS [Suspect]
     Active Substance: INSULIN GLARGINE
     Indication: PRODUCT USED FOR UNKNOWN INDICATION
     Dosage: UNK,DOSE:4 IU THEN INCREASED TO ROUGHLY 16 IU, POSSIBLY HIGHER
     Route: 064
     Dates: start: 2009
  2. METFORMIN 500MG [Suspect]
     Active Substance: METFORMIN HYDROCHLORIDE
     Indication: PRODUCT USED FOR UNKNOWN INDICATION
     Dosage: UNK (1), DAILY
     Route: 064

REACTIONS (2)
  - Hypoglycaemia [Unknown]
  - Foetal exposure during pregnancy [Recovered/Resolved]
